FAERS Safety Report 22043145 (Version 1)
Quarter: 2023Q1

REPORT INFORMATION
  Report Type: Spontaneous
  Country: AU (occurrence: AU)
  Receive Date: 20230228
  Receipt Date: 20230228
  Transmission Date: 20230417
  Serious: Yes (Other)
  Sender: FDA-Public Use
  Company Number: AU-ORGANON-O2302AUS002446

PATIENT
  Age: 39 Year
  Sex: Female

DRUGS (1)
  1. ETONOGESTREL [Suspect]
     Active Substance: ETONOGESTREL
     Dosage: 1 IMPLANT
     Route: 059

REACTIONS (12)
  - Loss of consciousness [Unknown]
  - Device embolisation [Unknown]
  - General anaesthesia [Unknown]
  - Pulmonary embolism [Unknown]
  - Lymphadenopathy [Unknown]
  - Anaemia [Unknown]
  - Dizziness [Unknown]
  - Heavy menstrual bleeding [Unknown]
  - Mood altered [Unknown]
  - Nausea [Unknown]
  - Complication associated with device [Unknown]
  - Incorrect product administration duration [Unknown]
